FAERS Safety Report 9970139 (Version 1)
Quarter: 2014Q1

REPORT INFORMATION
  Report Type: Spontaneous
  Country: AT (occurrence: AT)
  Receive Date: 20140306
  Receipt Date: 20140306
  Transmission Date: 20141002
  Serious: Yes (Life-Threatening)
  Sender: FDA-Public Use
  Company Number: AT-ASTRAZENECA-2014SE15106

PATIENT
  Sex: Male

DRUGS (1)
  1. BRILIQUE [Suspect]
     Route: 048

REACTIONS (1)
  - Thrombosis in device [Unknown]
